FAERS Safety Report 14994825 (Version 5)
Quarter: 2019Q2

REPORT INFORMATION
  Report Type: Spontaneous
  Country: US (occurrence: US)
  Receive Date: 20180611
  Receipt Date: 20190628
  Transmission Date: 20190711
  Serious: Yes (Other)
  Sender: FDA-Public Use
  Company Number: US-PFIZER INC-2018235645

PATIENT
  Age: 63 Year
  Sex: Female
  Weight: 159 kg

DRUGS (6)
  1. LYRICA [Suspect]
     Active Substance: PREGABALIN
     Indication: MUSCLE SPASMS
  2. LYRICA [Suspect]
     Active Substance: PREGABALIN
     Indication: BACK DISORDER
  3. LYRICA [Suspect]
     Active Substance: PREGABALIN
     Indication: MUSCULOSKELETAL DISCOMFORT
  4. LYRICA [Suspect]
     Active Substance: PREGABALIN
     Indication: HYPOAESTHESIA
  5. CYMBALTA [Concomitant]
     Active Substance: DULOXETINE HYDROCHLORIDE
     Dosage: UNK
  6. LYRICA [Suspect]
     Active Substance: PREGABALIN
     Indication: FIBROMYALGIA
     Dosage: 100 MG, 3X/DAY

REACTIONS (13)
  - Central nervous system lesion [Unknown]
  - Mental disorder [Unknown]
  - Memory impairment [Recovering/Resolving]
  - Stress fracture [Unknown]
  - Physical deconditioning [Recovering/Resolving]
  - Weight increased [Recovering/Resolving]
  - Hypertension [Unknown]
  - Foot fracture [Unknown]
  - Dizziness [Recovered/Resolved]
  - Tendon rupture [Unknown]
  - Body height decreased [Unknown]
  - Intentional product misuse [Unknown]
  - Diabetic vascular disorder [Unknown]
